FAERS Safety Report 18974417 (Version 1)
Quarter: 2021Q1

REPORT INFORMATION
  Report Type: Spontaneous
  Country: DE (occurrence: DE)
  Receive Date: 20210305
  Receipt Date: 20210305
  Transmission Date: 20210420
  Serious: Yes (Death)
  Sender: FDA-Public Use
  Company Number: DE-ELI_LILLY_AND_COMPANY-DE202103001249

PATIENT
  Sex: Female

DRUGS (4)
  1. PAROXETIN [PAROXETINE] [Suspect]
     Active Substance: PAROXETINE
     Indication: PSYCHOTIC DISORDER
     Dosage: SUSPENDED MEDICATION DURING 1ST PREGNANCY (BIRTH 2011)
     Route: 064
  2. OLANZAPINE. [Suspect]
     Active Substance: OLANZAPINE
     Indication: PSYCHOTIC DISORDER
     Dosage: START OF THERAPY BEFORE 2011
     Route: 064
  3. OLANZAPINE. [Suspect]
     Active Substance: OLANZAPINE
     Indication: PSYCHOTIC DISORDER
     Dosage: START OF THERAPY BEFORE 2011
     Route: 064
  4. PAROXETIN [PAROXETINE] [Suspect]
     Active Substance: PAROXETINE
     Indication: PSYCHOTIC DISORDER
     Dosage: SUSPENDED MEDICATION DURING 1ST PREGNANCY (BIRTH 2011)
     Route: 064

REACTIONS (2)
  - Foetal exposure during pregnancy [Recovered/Resolved]
  - Stillbirth [Fatal]

NARRATIVE: CASE EVENT DATE: 20190808
